FAERS Safety Report 7370207-2 (Version None)
Quarter: 2011Q1

REPORT INFORMATION
  Report Type: 
  Country: None (occurrence: None)
  Receive Date: 20110323
  Receipt Date: 20100628
  Transmission Date: 20110831
  Serious: No
  Sender: FDA-Public Use
  Company Number: US-ASTRAZENECA-2010SE30176

PATIENT
  Age: 29 Year
  Sex: Female

DRUGS (1)
  1. ZESTRIL [Suspect]
     Indication: BLOOD PRESSURE ABNORMAL
     Route: 048

REACTIONS (3)
  - THERAPEUTIC RESPONSE UNEXPECTED [None]
  - PAIN IN EXTREMITY [None]
  - DRUG DOSE OMISSION [None]
